FAERS Safety Report 11037308 (Version 2)
Quarter: 2015Q2

REPORT INFORMATION
  Report Type: Spontaneous
  Country: US (occurrence: US)
  Receive Date: 20150416
  Receipt Date: 20150427
  Transmission Date: 20150821
  Serious: No
  Sender: FDA-Public Use
  Company Number: US-PFIZER INC-2015130348

PATIENT
  Sex: Female

DRUGS (2)
  1. PREMARIN [Suspect]
     Active Substance: ESTROGENS, CONJUGATED
     Dosage: SMALL DOSE ONE OR TWO TIMES A WEEK
  2. PREMARIN [Concomitant]
     Active Substance: ESTROGENS, CONJUGATED
     Dosage: 0.3 GREEN TABLETS, ALTERNATE DAY

REACTIONS (4)
  - Vulvovaginal burning sensation [Unknown]
  - Fungal infection [Unknown]
  - Furuncle [Unknown]
  - Vulvovaginal pruritus [Unknown]
